FAERS Safety Report 6055895-5 (Version None)
Quarter: 2009Q1

REPORT INFORMATION
  Report Type: 
  Country: None (occurrence: None)
  Receive Date: 20090128
  Receipt Date: 20090119
  Transmission Date: 20090719
  Serious: Yes (Hospitalization)
  Sender: FDA-Public Use
  Company Number: PHHY2009HU01966

PATIENT
  Age: 60 Year
  Sex: Female

DRUGS (3)
  1. EXFORGE [Suspect]
     Indication: HYPERTENSION
     Dosage: 5 MG / 80 MG
     Route: 048
  2. EXFORGE [Suspect]
     Dosage: 10 MG / 160 MG
     Route: 048
  3. TENAXUM [Concomitant]
     Indication: HYPERTENSION
     Dosage: 1X 1 MG

REACTIONS (2)
  - BLOOD CHOLESTEROL INCREASED [None]
  - HYPERTENSIVE CRISIS [None]
